FAERS Safety Report 14636132 (Version 1)
Quarter: 2018Q1

REPORT INFORMATION
  Report Type: Not Available
  Country: US (occurrence: US)
  Receive Date: 20180314
  Receipt Date: 20180314
  Transmission Date: 20180509
  Serious: No
  Sender: FDA-Public Use
  Company Number: US-FOUNDATIONCONSUMERHC-2018-US-000690

PATIENT
  Age: 16 Year
  Sex: Female
  Weight: 63.5 kg

DRUGS (4)
  1. CHLOR-TRAMATAN [Concomitant]
  2. ZYRTEC [Concomitant]
     Active Substance: CETIRIZINE HYDROCHLORIDE
  3. BENADRYL [Concomitant]
     Active Substance: DIPHENHYDRAMINE HYDROCHLORIDE
  4. PLAN B ONE-STEP [Suspect]
     Active Substance: LEVONORGESTREL
     Dosage: 1 DOSE X 1
     Route: 048
     Dates: start: 20180108, end: 20180108

REACTIONS (5)
  - Vaginal haemorrhage [Unknown]
  - Abdominal pain upper [Recovered/Resolved]
  - Mood swings [Unknown]
  - Anxiety [Unknown]
  - Abdominal pain [Recovered/Resolved]

NARRATIVE: CASE EVENT DATE: 20180108
